FAERS Safety Report 8481155-9 (Version None)
Quarter: 2012Q3

REPORT INFORMATION
  Report Type: 
  Country: None (occurrence: None)
  Receive Date: 20120702
  Receipt Date: 20120628
  Transmission Date: 20120928
  Serious: Yes (Death)
  Sender: FDA-Public Use
  Company Number: PHHY2012CA049304

PATIENT
  Age: 27 Year
  Sex: Female

DRUGS (11)
  1. TOPIRAMATE [Suspect]
  2. CLOBAZAM [Suspect]
  3. MAGNESIUM SULFATE [Suspect]
  4. LEVETIRACETAM [Suspect]
  5. ISOFLURANE [Suspect]
  6. VALPROIC ACID [Suspect]
  7. MIDAZOLAM [Suspect]
  8. LACOSAMIDE [Suspect]
  9. OXCARBAZEPINE [Suspect]
  10. IMMUNE GLOBULIN NOS [Suspect]
  11. KETAMINE HCL [Suspect]

REACTIONS (1)
  - DEATH [None]
